FAERS Safety Report 14334107 (Version 4)
Quarter: 2018Q3

REPORT INFORMATION
  Report Type: Report from Study
  Country: ES (occurrence: ES)
  Receive Date: 20171228
  Receipt Date: 20180813
  Transmission Date: 20181010
  Serious: Yes (Other)
  Sender: FDA-Public Use
  Company Number: ES-TEVA-2017-ES-837775

PATIENT
  Age: 3 Year
  Sex: Male

DRUGS (9)
  1. DEXAMETASONA (722A) [Suspect]
     Active Substance: DEXAMETHASONE
     Indication: ACUTE LYMPHOCYTIC LEUKAEMIA
     Route: 042
     Dates: start: 20170802, end: 20170807
  2. FILGRASTIM (7089A) [Concomitant]
     Active Substance: FILGRASTIM
     Indication: NEUTROPENIA
     Route: 058
     Dates: start: 20170809, end: 20170821
  3. CITARABINA (124A) [Suspect]
     Active Substance: CYTARABINE
     Indication: ACUTE LYMPHOCYTIC LEUKAEMIA
     Route: 042
     Dates: start: 20170802, end: 20170803
  4. ONCASPAR [Suspect]
     Active Substance: PEGASPARGASE
     Indication: ACUTE LYMPHOCYTIC LEUKAEMIA
     Route: 030
     Dates: start: 20170808, end: 20170808
  5. AMFOTERICINA B (408A) [Concomitant]
     Indication: OPPORTUNISTIC INFECTION PROPHYLAXIS
     Route: 045
     Dates: start: 20170809, end: 20170820
  6. ZOVIRAX  400 MG/5 ML SUSPENSION ORAL , 1 FRASCO DE 200 ML [Concomitant]
     Indication: OPPORTUNISTIC INFECTION PROPHYLAXIS
     Route: 048
     Dates: start: 20170307
  7. ETOPOSIDE. [Suspect]
     Active Substance: ETOPOSIDE
     Indication: ACUTE LYMPHOCYTIC LEUKAEMIA
     Route: 042
     Dates: start: 20170804, end: 20170806
  8. SEPTRIN PEDIATRICO 8 MG/40 MG/ML SUSPENSION ORAL , 1 FRASCO DE 100 ML [Concomitant]
     Active Substance: SULFAMETHOXAZOLE\TRIMETHOPRIM
     Indication: OPPORTUNISTIC INFECTION PROPHYLAXIS
     Route: 048
     Dates: start: 20170307
  9. FLUCONAZOL (2432A) [Concomitant]
     Active Substance: FLUCONAZOLE
     Indication: OPPORTUNISTIC INFECTION PROPHYLAXIS
     Route: 048
     Dates: start: 20170809, end: 20170820

REACTIONS (3)
  - Haematoma [Recovered/Resolved]
  - Febrile neutropenia [Recovered/Resolved]
  - Pancytopenia [Recovered/Resolved]

NARRATIVE: CASE EVENT DATE: 20170811
